FAERS Safety Report 22240808 (Version 1)
Quarter: 2023Q2

REPORT INFORMATION
  Report Type: Spontaneous
  Country: US (occurrence: US)
  Receive Date: 20230421
  Receipt Date: 20230421
  Transmission Date: 20230721
  Serious: No
  Sender: FDA-Public Use
  Company Number: US-MYLANLABS-2023M1031623

PATIENT
  Sex: Female
  Weight: 79.3 kg

DRUGS (2)
  1. ELETRIPTAN [Suspect]
     Active Substance: ELETRIPTAN
     Indication: Migraine
     Dosage: UNK (TWICE A DAY)
     Route: 065
  2. PAXLOVID [Suspect]
     Active Substance: NIRMATRELVIR\RITONAVIR
     Indication: COVID-19
     Dosage: 1 DOSAGE FORM, BID (ONE TABLET (BID) TWICE A DAY )
     Route: 048

REACTIONS (3)
  - Headache [Unknown]
  - Parosmia [Unknown]
  - Contraindicated product administered [Unknown]
